FAERS Safety Report 5063786-1 (Version None)
Quarter: 2006Q3

REPORT INFORMATION
  Report Type: 
  Country: None (occurrence: None)
  Receive Date: 20060703
  Receipt Date: 20060417
  Transmission Date: 20061208
  Serious: No
  Sender: FDA-Public Use
  Company Number: 2006S1003735

PATIENT
  Age: 56 Year
  Sex: Female

DRUGS (11)
  1. CLOZAPINE [Suspect]
     Dosage: SEE IMAGE
     Route: 048
     Dates: start: 20060101
  2. CLOZAPINE [Suspect]
     Dosage: SEE IMAGE
     Route: 048
     Dates: start: 20060101
  3. CLOZAPINE [Suspect]
     Dosage: SEE IMAGE
     Route: 048
     Dates: start: 20060101
  4. ZIPRASIDONE HCL [Concomitant]
  5. RANITIDINE [Concomitant]
  6. LEVOTHYROXINE SODIUM [Concomitant]
  7. ALENDRONATE SODIUM [Concomitant]
  8. VALPROATE SODIUM [Concomitant]
  9. TEGASEROD [Concomitant]
  10. OXYBUTYNIN [Concomitant]
  11. LORATADINE [Concomitant]

REACTIONS (1)
  - GRANULOCYTOPENIA [None]
